FAERS Safety Report 9131152 (Version 4)
Quarter: 2013Q2

REPORT INFORMATION
  Report Type: Spontaneous
  Country: JP (occurrence: JP)
  Receive Date: 20130301
  Receipt Date: 20130416
  Transmission Date: 20140414
  Serious: Yes (Other)
  Sender: FDA-Public Use
  Company Number: JP-PFIZER INC-2013069834

PATIENT
  Age: 89 Year
  Sex: Female

DRUGS (2)
  1. WYPAX [Suspect]
     Dosage: UNK
     Route: 048
     Dates: start: 20130212
  2. SOLANAX [Suspect]
     Dosage: UNK
     Route: 048

REACTIONS (2)
  - Cognitive disorder [Recovered/Resolved]
  - Malaise [Recovered/Resolved]
